FAERS Safety Report 24547267 (Version 3)
Quarter: 2024Q4

REPORT INFORMATION
  Report Type: Spontaneous
  Country: US (occurrence: US)
  Receive Date: 20241025
  Receipt Date: 20241209
  Transmission Date: 20250114
  Serious: Yes (Hospitalization, Other)
  Sender: BIOVITRUM
  Company Number: US-BIOVITRUM-2024-US-013669

PATIENT
  Age: 64 Year
  Sex: Male

DRUGS (2)
  1. VONJO [Suspect]
     Active Substance: PACRITINIB
     Indication: Myelofibrosis
     Dosage: EVERY 12 HOURS
     Route: 048
     Dates: start: 20220809
  2. VONJO [Suspect]
     Active Substance: PACRITINIB
     Dosage: 2 CAPSULES EVERY 12 HOURS
     Route: 048
     Dates: start: 20220809

REACTIONS (6)
  - Blood urine present [Unknown]
  - Pain [Unknown]
  - Nephrolithiasis [Unknown]
  - Haemorrhage [Unknown]
  - Social problem [Unknown]
  - Loss of personal independence in daily activities [Unknown]

NARRATIVE: CASE EVENT DATE: 20241101
